FAERS Safety Report 7251994-0 (Version None)
Quarter: 2011Q1

REPORT INFORMATION
  Report Type: 
  Country: None (occurrence: None)
  Receive Date: 20110128
  Receipt Date: 20100205
  Transmission Date: 20110831
  Serious: No
  Sender: FDA-Public Use
  Company Number: US-ABBOTT-09P-163-0617039-00

PATIENT
  Sex: Female
  Weight: 58.112 kg

DRUGS (10)
  1. LIPITOR [Concomitant]
     Indication: PRODUCT USED FOR UNKNOWN INDICATION
  2. DIAZIDE [Concomitant]
     Indication: MENIERE'S DISEASE
     Dates: start: 20080101
  3. EFFEXOR [Concomitant]
     Indication: PRODUCT USED FOR UNKNOWN INDICATION
  4. BUSPAR [Concomitant]
     Indication: PRODUCT USED FOR UNKNOWN INDICATION
  5. TRAZODONE HCL [Concomitant]
     Indication: PRODUCT USED FOR UNKNOWN INDICATION
  6. PENTASA [Concomitant]
     Indication: PRODUCT USED FOR UNKNOWN INDICATION
  7. INRON INFUSIONS [Concomitant]
     Indication: PRODUCT USED FOR UNKNOWN INDICATION
  8. HUMIRA [Suspect]
     Indication: CROHN'S DISEASE
  9. HUMIRA [Suspect]
     Dates: start: 20091107, end: 20091107
  10. NEXIUM [Concomitant]
     Indication: GASTROOESOPHAGEAL REFLUX DISEASE

REACTIONS (2)
  - INJECTION SITE PRURITUS [None]
  - INJECTION SITE ERYTHEMA [None]
